FAERS Safety Report 9782204 (Version 1)
Quarter: 2013Q4

REPORT INFORMATION
  Report Type: Spontaneous
  Country: AU (occurrence: AU)
  Receive Date: 20131226
  Receipt Date: 20131226
  Transmission Date: 20140711
  Serious: Yes (Hospitalization)
  Sender: FDA-Public Use
  Company Number: AU-009507513-1312AUS008503

PATIENT
  Age: 43 Year
  Sex: Female
  Weight: 55 kg

DRUGS (1)
  1. MIRTAZAPINE [Suspect]
     Indication: DEPRESSION
     Dosage: 30 DOSE UNSPECIFIED 1 TIME; CAPSULE SOFT ENTERIC
     Route: 048
     Dates: start: 20131027, end: 20131029

REACTIONS (1)
  - Joint swelling [Recovered/Resolved]
